FAERS Safety Report 20814561 (Version 1)
Quarter: 2022Q2

REPORT INFORMATION
  Report Type: Report from Study
  Country: KR (occurrence: KR)
  Receive Date: 20220511
  Receipt Date: 20220511
  Transmission Date: 20220721
  Serious: Yes (Death, Other)
  Sender: FDA-Public Use
  Company Number: KR-GLAXOSMITHKLINE-KR2022GSK076125

PATIENT
  Age: 77 Year
  Sex: Male
  Weight: 53 kg

DRUGS (27)
  1. FLUTICASONE FUROATE\UMECLIDINIUM BROMIDE\VILANTEROL TRIFENATATE [Suspect]
     Active Substance: FLUTICASONE FUROATE\UMECLIDINIUM BROMIDE\VILANTEROL TRIFENATATE
     Indication: Chronic obstructive pulmonary disease
     Dosage: UNK
     Route: 055
     Dates: start: 20211104, end: 20220401
  2. SPIRIVA RESPIMAT [Concomitant]
     Active Substance: TIOTROPIUM BROMIDE
     Indication: Chronic obstructive pulmonary disease
     Dosage: 22.5 UG, SINGLE
     Dates: start: 20220218, end: 20220302
  3. RELVAR 100 ELLIPTA [Concomitant]
     Dosage: 3.3 UG, SINGLE
     Route: 055
     Dates: start: 20220218, end: 20220302
  4. VENTOLIN NEBULE [Concomitant]
     Dosage: 2.5 UG, SINGLE
     Route: 055
     Dates: start: 20220221, end: 20220318
  5. ACETYLCYSTEINE [Concomitant]
     Active Substance: ACETYLCYSTEINE
     Dosage: 4 ML, SINGLE
     Dates: start: 20220221, end: 20220318
  6. IPRATROPIUM BROMIDE [Concomitant]
     Active Substance: IPRATROPIUM BROMIDE
     Dosage: 18 UG, SINGLE
     Dates: start: 20220221, end: 20220318
  7. ERDOS CAPSULE [Concomitant]
     Dosage: 300 UG, BID
     Route: 048
     Dates: start: 20211007, end: 20211104
  8. LASIX [Concomitant]
     Active Substance: FUROSEMIDE
     Dosage: 20 MG, SINGLE
     Route: 042
     Dates: start: 20220218, end: 20220218
  9. TRIAXONE [Concomitant]
     Dosage: 2 G, SINGLE
     Route: 042
     Dates: start: 20220217, end: 20220218
  10. TAZOLACTAM [Concomitant]
     Dosage: 4.5 G, SINGLE
     Route: 042
     Dates: start: 20220219, end: 20220226
  11. TACENOL 8HR ER [Concomitant]
     Indication: Pain
     Dosage: 650 MG, SINGLE
     Dates: start: 20220218, end: 20220218
  12. HARNAL [Concomitant]
     Active Substance: TAMSULOSIN HYDROCHLORIDE
     Dosage: 0.2 MG, SINGLE
     Route: 048
     Dates: start: 20220217, end: 20220218
  13. ERDOSTEINE [Concomitant]
     Active Substance: ERDOSTEINE
     Indication: Productive cough
     Dosage: 300 MG, SINGLE
     Route: 048
     Dates: start: 20220217, end: 20220218
  14. EBASTINE [Concomitant]
     Active Substance: EBASTINE
     Indication: Rhinitis allergic
     Dosage: 10 MG, SINGLE
     Route: 048
     Dates: start: 20220217, end: 20220218
  15. RIPERIDON [Concomitant]
     Dosage: 0.25 MG, SINGLE
     Route: 048
     Dates: start: 20220221, end: 20220221
  16. ULTRACET [Concomitant]
     Active Substance: ACETAMINOPHEN\TRAMADOL HYDROCHLORIDE
     Dosage: 200 MG, SINGLE
     Route: 042
     Dates: start: 20220224, end: 20220224
  17. MEGACE F SUSPENSION [Concomitant]
  18. ABSTRAL [Concomitant]
     Active Substance: FENTANYL CITRATE
  19. MAGNESIUM HYDROXIDE [Concomitant]
     Active Substance: MAGNESIUM HYDROXIDE
  20. CACEPIN [Concomitant]
  21. NORVASC [Concomitant]
     Active Substance: AMLODIPINE BESYLATE
  22. LIPITOR [Concomitant]
     Active Substance: ATORVASTATIN CALCIUM
  23. ASPIRIN [Concomitant]
     Active Substance: ASPIRIN
  24. DULCOLAX-S [Concomitant]
  25. TYLICOL [Concomitant]
  26. TACENOL [Concomitant]
  27. TRAMADOL HYDROCHLORIDE [Concomitant]
     Active Substance: TRAMADOL HYDROCHLORIDE
     Indication: Pain
     Dosage: 50 MG, SINGLE
     Route: 042
     Dates: start: 20220302, end: 20220302

REACTIONS (1)
  - Death [Fatal]

NARRATIVE: CASE EVENT DATE: 20220402
